FAERS Safety Report 9296677 (Version 4)
Quarter: 2013Q4

REPORT INFORMATION
  Report Type: Spontaneous
  Country: US (occurrence: US)
  Receive Date: 20130517
  Receipt Date: 20131122
  Transmission Date: 20140711
  Serious: Yes (Hospitalization)
  Sender: FDA-Public Use
  Company Number: US-B.I. PHARMACEUTICALS,INC./RIDGEFIELD-2013-BI-13385BP

PATIENT
  Age: 76 Year
  Sex: Male
  Weight: 81.65 kg

DRUGS (10)
  1. PRADAXA [Suspect]
     Indication: ANTICOAGULANT THERAPY
     Dosage: 150 MG
     Route: 048
     Dates: start: 20101224, end: 20120505
  2. PROPRANOLOL [Concomitant]
     Dosage: 120 MG
     Route: 048
     Dates: start: 199912
  3. FUROSEMIDE [Concomitant]
     Dosage: 40 MG
     Route: 048
     Dates: start: 200006
  4. POTASSIUM CHLORIDE [Concomitant]
     Dosage: 20 MEQ
     Route: 048
     Dates: start: 200006
  5. LOVASTATIN [Concomitant]
     Dosage: 80 MG
     Route: 048
     Dates: start: 200006
  6. NIFEDIPINE [Concomitant]
     Dosage: 30 MG
     Route: 048
     Dates: start: 200006
  7. ASPIRIN LOW DOSE [Concomitant]
  8. TYLENOL [Concomitant]
  9. VITAMIN B12 [Concomitant]
     Dosage: 2000 MG
     Route: 048
  10. GLUCOSAMINE [Concomitant]
     Dosage: 150 MG
     Route: 048

REACTIONS (1)
  - Lower gastrointestinal haemorrhage [Unknown]
